FAERS Safety Report 23675429 (Version 1)
Quarter: 2024Q1

REPORT INFORMATION
  Report Type: Spontaneous
  Country: US (occurrence: US)
  Receive Date: 20240327
  Receipt Date: 20240327
  Transmission Date: 20240410
  Serious: No
  Sender: FDA-Public Use
  Company Number: US-AMGEN-USASP2024059199

PATIENT
  Sex: Male

DRUGS (3)
  1. RIABNI [Suspect]
     Active Substance: RITUXIMAB-ARRX
     Indication: Non-Hodgkin^s lymphoma
     Dosage: DOSE ORDERED: 1050 MG, DOSE REQUESTED: TWO 500 MG VIALS AND ONE 100 MG VIALS 500 MG VIALS
     Route: 065
  2. RIABNI [Suspect]
     Active Substance: RITUXIMAB-ARRX
     Dosage: DOSE ORDERED: 1050 MG, DOSE REQUESTED: TWO 500 MG VIALS AND ONE 100 MG VIALS 500 MG VIALS
     Route: 065
  3. KANJINTI [Suspect]
     Active Substance: TRASTUZUMAB-ANNS
     Indication: Product used for unknown indication
     Dosage: UNK
     Route: 065

REACTIONS (2)
  - Cough [Unknown]
  - Fatigue [Unknown]
